FAERS Safety Report 11258578 (Version 1)
Quarter: 2015Q3

REPORT INFORMATION
  Report Type: Spontaneous
  Country: US (occurrence: US)
  Receive Date: 20150710
  Receipt Date: 20150710
  Transmission Date: 20151125
  Serious: No
  Sender: FDA-Public Use
  Company Number: US-PURDUE-USA-2014-0117163

PATIENT
  Age: 38 Year
  Sex: Female

DRUGS (1)
  1. BUTRANS [Suspect]
     Active Substance: BUPRENORPHINE
     Indication: PAIN
     Dosage: 15 MCG/HR, WEEKLY
     Route: 062
     Dates: start: 201405

REACTIONS (8)
  - Application site rash [Unknown]
  - Application site pain [Unknown]
  - Application site erythema [Unknown]
  - Application site exfoliation [Unknown]
  - Application site vesicles [Unknown]
  - Application site pruritus [Unknown]
  - Application site irritation [Unknown]
  - Product adhesion issue [Unknown]

NARRATIVE: CASE EVENT DATE: 201408
